FAERS Safety Report 17443927 (Version 1)
Quarter: 2020Q1

REPORT INFORMATION
  Report Type: Spontaneous
  Country: JP (occurrence: JP)
  Receive Date: 20200221
  Receipt Date: 20200221
  Transmission Date: 20200409
  Serious: Yes (Hospitalization, Other)
  Sender: FDA-Public Use
  Company Number: JP-AMGEN-JPNSP2020029177

PATIENT
  Age: 89 Year
  Sex: Female
  Weight: 53 kg

DRUGS (8)
  1. NESP [Concomitant]
     Active Substance: DARBEPOETIN ALFA
     Indication: NEPHROGENIC ANAEMIA
     Dosage: 15 MILLIGRAM, QWK
     Route: 042
     Dates: start: 20181228, end: 20191108
  2. BERIZYM [ENZYMES NOS;PANCREATIN] [Concomitant]
     Indication: DYSPEPSIA
     Dosage: 1 GRAM, Q8H
     Route: 048
     Dates: start: 20180824
  3. LASIX [Concomitant]
     Active Substance: FUROSEMIDE
     Indication: OLIGURIA
     Dosage: 40 MILLIGRAM, QD
     Route: 048
     Dates: start: 20160620
  4. OXAROL [Concomitant]
     Active Substance: MAXACALCITOL
     Indication: HYPERPARATHYROIDISM SECONDARY
     Dosage: 2.5 MILLIGRAM, 3 TIMES/WK
     Route: 042
     Dates: start: 20190322, end: 20200124
  5. NEOAMIYU [Concomitant]
     Active Substance: AMINO ACIDS, SOURCE UNSPECIFIED
     Indication: NUTRITIONAL SUPPLEMENTATION
     Dosage: 200 MILLILITER, 3 TIMES/WK
     Route: 041
     Dates: start: 20161019
  6. INTRALIPOS [Concomitant]
     Active Substance: SOYBEAN OIL
     Indication: NUTRITIONAL SUPPLEMENTATION
     Dosage: 250 MILLILITER, 3 TIMES/WK
     Route: 041
     Dates: start: 20180808
  7. PARSABIV [Suspect]
     Active Substance: ETELCALCETIDE HYDROCHLORIDE
     Indication: HYPERPARATHYROIDISM SECONDARY
     Dosage: 2.5 MILLIGRAM, 3 TIMES/WK
     Route: 010
     Dates: start: 20190802
  8. GASMOTIN [Concomitant]
     Active Substance: MOSAPRIDE CITRATE
     Indication: GASTROINTESTINAL DISORDER
     Dosage: 5 MILLIGRAM, Q8H
     Route: 048
     Dates: start: 20180824

REACTIONS (1)
  - Cataract [Recovered/Resolved]

NARRATIVE: CASE EVENT DATE: 20190819
